FAERS Safety Report 6471655-5 (Version None)
Quarter: 2009Q4

REPORT INFORMATION
  Report Type: 
  Country: None (occurrence: None)
  Receive Date: 20091203
  Receipt Date: 20080325
  Transmission Date: 20100525
  Serious: Yes (Death, Hospitalization)
  Sender: FDA-Public Use
  Company Number: US-ELI_LILLY_AND_COMPANY-US200803001390

PATIENT
  Sex: Male

DRUGS (1)
  1. HUMALOG [Suspect]
     Dosage: UNK, UNK
     Dates: start: 20030101

REACTIONS (6)
  - BLOOD GLUCOSE INCREASED [None]
  - DEATH [None]
  - DIZZINESS [None]
  - MALAISE [None]
  - MYOCARDIAL INFARCTION [None]
  - VASCULAR GRAFT OCCLUSION [None]
